FAERS Safety Report 5217085-5 (Version None)
Quarter: 2007Q1

REPORT INFORMATION
  Report Type: 
  Country: None (occurrence: None)
  Receive Date: 20070118
  Receipt Date: 20070105
  Transmission Date: 20070707
  Serious: Yes (Hospitalization)
  Sender: FDA-Public Use
  Company Number: HQWYE620105JAN07

PATIENT
  Age: 73 Year
  Sex: Male

DRUGS (9)
  1. CORDARONE [Suspect]
     Dosage: 200 MG 4X PER 1 DAY
     Route: 048
     Dates: start: 20061104
  2. FUNGIZONE [Suspect]
     Dosage: 80 MG DAILY
     Route: 042
     Dates: start: 20061103, end: 20061121
  3. MOPRAL (OMEPRAZOLE,) [Suspect]
     Dosage: 1 UNIT DAILY
     Route: 048
  4. NEURONTIN [Suspect]
     Dosage: 3 UNITS DAILY
     Route: 048
  5. POLARAMINE [Suspect]
     Dosage: 1 UNIT DAILY
     Route: 042
     Dates: start: 20061103, end: 20061121
  6. ROCEPHIN [Suspect]
     Dosage: 1 G DAILY
     Route: 042
     Dates: start: 20061103, end: 20061120
  7. IRBESARTAN [Concomitant]
  8. LASIX [Concomitant]
  9. INSULIN [Concomitant]

REACTIONS (3)
  - ANAEMIA [None]
  - CONDITION AGGRAVATED [None]
  - THROMBOCYTOPENIA [None]
